FAERS Safety Report 16926893 (Version 5)
Quarter: 2019Q4

REPORT INFORMATION
  Report Type: Spontaneous
  Country: US (occurrence: US)
  Receive Date: 20191016
  Receipt Date: 20191202
  Transmission Date: 20200122
  Serious: No
  Sender: FDA-Public Use
  Company Number: US-ACTELION-A-NJ2019-196988

PATIENT
  Sex: Female
  Weight: 77.1 kg

DRUGS (4)
  1. TADALAFIL. [Concomitant]
     Active Substance: TADALAFIL
  2. OPSUMIT [Suspect]
     Active Substance: MACITENTAN
     Indication: PULMONARY ARTERIAL HYPERTENSION
     Dosage: 10 MG, QD
     Route: 048
  3. REMODULIN [Concomitant]
     Active Substance: TREPROSTINIL
  4. COUMADIN [Concomitant]
     Active Substance: WARFARIN SODIUM

REACTIONS (8)
  - Cough [Unknown]
  - Bacterial infection [Unknown]
  - Pruritus [Unknown]
  - Dyspepsia [Unknown]
  - Burning sensation [Unknown]
  - Breast pain [Unknown]
  - Productive cough [Unknown]
  - Dysphonia [Unknown]
